FAERS Safety Report 16474284 (Version 1)
Quarter: 2019Q2

REPORT INFORMATION
  Report Type: Spontaneous
  Country: US (occurrence: US)
  Receive Date: 20190625
  Receipt Date: 20190625
  Transmission Date: 20190711
  Serious: No
  Sender: FDA-Public Use
  Company Number: US-PFIZER INC-2019271036

PATIENT
  Age: 60 Year
  Sex: Female

DRUGS (1)
  1. ESTROGENS CONJUGATED [Suspect]
     Active Substance: ESTROGENS, CONJUGATED
     Dosage: UNK

REACTIONS (1)
  - Anxiety [Unknown]
